FAERS Safety Report 7349087-7 (Version None)
Quarter: 2011Q1

REPORT INFORMATION
  Report Type: 
  Country: None (occurrence: None)
  Receive Date: 20110314
  Receipt Date: 20110308
  Transmission Date: 20110831
  Serious: Yes (Life-Threatening, Hospitalization, Other)
  Sender: FDA-Public Use
  Company Number: US-ASTELLAS-2011US000984

PATIENT

DRUGS (8)
  1. MULTI-VITAMIN [Concomitant]
     Indication: LIVER TRANSPLANT
     Dosage: 1 DF, UID/QD
     Route: 048
     Dates: start: 19970830
  2. PROGRAF [Suspect]
     Indication: LIVER TRANSPLANT
     Dosage: 2 MG, BID
     Route: 048
     Dates: start: 19970830
  3. PREDNISONE [Concomitant]
     Indication: LIVER TRANSPLANT
     Dosage: 5 MG, UID/QD
     Route: 048
     Dates: start: 19970830
  4. SIMVASTATIN [Concomitant]
     Indication: PRODUCT USED FOR UNKNOWN INDICATION
     Dosage: 10 MG, UID/QD
     Route: 048
  5. TUMS [Concomitant]
     Indication: LIVER TRANSPLANT
     Dosage: 1500 MG, UID/QD
     Route: 065
     Dates: start: 19970830
  6. ATENOLOL [Concomitant]
     Indication: BLOOD PRESSURE
     Dosage: 50 MG, UID/QD
     Route: 048
     Dates: start: 20010101
  7. LISINOPRIL [Concomitant]
     Indication: CARDIAC DISORDER
     Dosage: 10 MG, OTHER
     Route: 048
     Dates: start: 20050101
  8. ASPIRIN [Concomitant]
     Indication: CARDIOVASCULAR EVENT PROPHYLAXIS
     Dosage: 81 MG, UID/QD
     Route: 065
     Dates: start: 20050101

REACTIONS (3)
  - BREAST CANCER [None]
  - CROHN'S DISEASE [None]
  - ASPERGILLOSIS [None]
